FAERS Safety Report 24167673 (Version 1)
Quarter: 2024Q3

REPORT INFORMATION
  Report Type: Spontaneous
  Country: US (occurrence: None)
  Receive Date: 20240801
  Receipt Date: 20240801
  Transmission Date: 20241016
  Serious: Yes (Death)
  Sender: Public
  Company Number: None

PATIENT
  Age: 85 Year
  Sex: Male
  Weight: 78.75 kg

DRUGS (1)
  1. FLUDEOXYGLUCOSE F-18 [Suspect]
     Active Substance: FLUDEOXYGLUCOSE F-18
     Indication: Positron emission tomogram
     Dosage: 14.08 MCI MILLICURIE(S) ONE TIME INTRAVENOUS BOLUS
     Route: 040

REACTIONS (3)
  - Contrast media reaction [None]
  - Dyspnoea [None]
  - Cardiac arrest [None]

NARRATIVE: CASE EVENT DATE: 20240715
